FAERS Safety Report 7943194-3 (Version None)
Quarter: 2011Q4

REPORT INFORMATION
  Report Type: 
  Country: None (occurrence: None)
  Receive Date: 20111128
  Receipt Date: 20111123
  Transmission Date: 20120403
  Serious: Yes (Other)
  Sender: FDA-Public Use
  Company Number: IT-BAYER-2011-113699

PATIENT
  Sex: Male

DRUGS (1)
  1. CIPROFLAXACIN [Suspect]
     Dosage: UNK
     Route: 048
     Dates: start: 20110301

REACTIONS (5)
  - TENDONITIS [None]
  - DIZZINESS [None]
  - MYALGIA [None]
  - GAIT DISTURBANCE [None]
  - BALANCE DISORDER [None]
